FAERS Safety Report 6287498-1 (Version None)
Quarter: 2009Q3

REPORT INFORMATION
  Report Type: 
  Country: None (occurrence: None)
  Receive Date: 20090727
  Receipt Date: 20090717
  Transmission Date: 20100115
  Serious: Yes (Other)
  Sender: FDA-Public Use
  Company Number: CHPA2009US15467

PATIENT
  Sex: Female

DRUGS (2)
  1. FERROUS SULFATE TAB [Suspect]
     Indication: MINERAL SUPPLEMENTATION
     Dosage: 160 MG, QD, ORAL
     Route: 048
  2. VITAMIN B (NO INGREDIENTS/SUBSTANCES) [Concomitant]

REACTIONS (9)
  - ABDOMINAL PAIN UPPER [None]
  - FATIGUE [None]
  - HALLUCINATION [None]
  - HEART RATE INCREASED [None]
  - HYPERHIDROSIS [None]
  - INSOMNIA [None]
  - TREMOR [None]
  - VOMITING [None]
  - WRONG TECHNIQUE IN DRUG USAGE PROCESS [None]
